FAERS Safety Report 8005256-4 (Version None)
Quarter: 2011Q4

REPORT INFORMATION
  Report Type: 
  Country: None (occurrence: None)
  Receive Date: 20111223
  Receipt Date: 20111221
  Transmission Date: 20120403
  Serious: Yes (Death, Other)
  Sender: FDA-Public Use
  Company Number: PHHY2011JP111206

PATIENT
  Sex: Male
  Weight: 45 kg

DRUGS (10)
  1. LOXONIN [Concomitant]
     Dosage: 2 DF, UNK
     Route: 048
     Dates: start: 20080108
  2. AMLODIPINE [Concomitant]
     Dosage: 5 MG, UNK
     Route: 048
     Dates: start: 20090624
  3. TAMSULOSIN HCL [Concomitant]
     Dosage: 0.2 MG, UNK
     Route: 048
     Dates: start: 20080304
  4. ASPIRIN [Concomitant]
     Dosage: 1 DF, UNK
     Route: 048
     Dates: start: 20090805
  5. AZULFIDINE [Concomitant]
     Dosage: 1000 MG, UNK
     Route: 048
     Dates: start: 20080108
  6. VALSARTAN [Suspect]
     Indication: HYPERTENSION
     Dosage: 80 MG, QD
     Route: 048
     Dates: start: 20090521, end: 20090523
  7. ZANTAC [Concomitant]
     Dosage: 300 MG, UNK
     Route: 048
     Dates: start: 20080108
  8. VALSARTAN [Suspect]
     Dosage: 160 MG, QD
     Route: 048
     Dates: start: 20090624
  9. ARICEPT [Concomitant]
     Dosage: 5 MG, UNK
     Route: 048
     Dates: start: 20080108
  10. PREDNISOLONE [Concomitant]
     Dosage: 0.25 MG, UNK
     Route: 048
     Dates: start: 20080108

REACTIONS (3)
  - MARASMUS [None]
  - BLOOD UREA INCREASED [None]
  - BLOOD PRESSURE DIASTOLIC DECREASED [None]
